FAERS Safety Report 20898467 (Version 2)
Quarter: 2022Q4

REPORT INFORMATION
  Report Type: Report from Study
  Country: US (occurrence: US)
  Receive Date: 20220601
  Receipt Date: 20221017
  Transmission Date: 20230113
  Serious: Yes (Death, Hospitalization, Other)
  Sender: FDA-Public Use
  Company Number: US-ABBVIE-22K-163-4416241-00

PATIENT
  Sex: Female
  Weight: 81.646 kg

DRUGS (5)
  1. VENCLEXTA [Suspect]
     Active Substance: VENETOCLAX
     Indication: Product used for unknown indication
     Dosage: 100
     Route: 048
  2. VFEND [Suspect]
     Active Substance: VORICONAZOLE
     Indication: Product used for unknown indication
     Dosage: 2 IN 1 DAY
     Route: 065
  3. ALLOPURINOL [Concomitant]
     Active Substance: ALLOPURINOL
     Indication: Product used for unknown indication
     Dosage: 300 MG (1 IN 1 DAY)
     Route: 065
  4. VORICONAZOLE [Concomitant]
     Active Substance: VORICONAZOLE
     Indication: Product used for unknown indication
     Dosage: 200 MG (2 IN 1 DAY)
     Route: 065
  5. VALACYCLOVIR [Concomitant]
     Active Substance: VALACYCLOVIR HYDROCHLORIDE
     Indication: Product used for unknown indication
     Dosage: 500 MG (2 IN 1 DAY)
     Route: 065

REACTIONS (11)
  - Death [Fatal]
  - Hospice care [Unknown]
  - Myocardial injury [Unknown]
  - Lung neoplasm malignant [Unknown]
  - Leukaemia [Unknown]
  - Fungal infection [Unknown]
  - Gait inability [Unknown]
  - Hypophagia [Unknown]
  - Pain [Unknown]
  - Acute myeloid leukaemia [Unknown]
  - Atrial fibrillation [Unknown]

NARRATIVE: CASE EVENT DATE: 20200101
